FAERS Safety Report 8612870-1 (Version None)
Quarter: 2012Q3

REPORT INFORMATION
  Report Type: 
  Country: None (occurrence: None)
  Receive Date: 20120822
  Receipt Date: 20120328
  Transmission Date: 20120928
  Serious: No
  Sender: FDA-Public Use
  Company Number: US-ASTRAZENECA-2011SE41229

PATIENT
  Age: 55 Year
  Sex: Female

DRUGS (3)
  1. SYMBICORT [Suspect]
     Route: 055
  2. NEXIUM [Suspect]
     Route: 048
  3. NEXIUM [Suspect]
     Indication: GASTRIC DISORDER
     Route: 048

REACTIONS (4)
  - ABDOMINAL PAIN UPPER [None]
  - GASTRIC DISORDER [None]
  - COMPLEX REGIONAL PAIN SYNDROME [None]
  - DRUG INEFFECTIVE [None]
